FAERS Safety Report 8487463-X (Version None)
Quarter: 2012Q3

REPORT INFORMATION
  Report Type: 
  Country: None (occurrence: None)
  Receive Date: 20120705
  Receipt Date: 20120628
  Transmission Date: 20120928
  Serious: Yes (Other)
  Sender: FDA-Public Use
  Company Number: CA-BAYER-2012-064272

PATIENT
  Sex: Female

DRUGS (2)
  1. MIRENA [Suspect]
     Dosage: 20 ?G/D, CONT
     Route: 015
  2. MIRENA [Suspect]
     Dosage: 20 ?G/D, CONT
     Route: 015
     Dates: start: 20090101

REACTIONS (6)
  - HAEMORRHAGE IN PREGNANCY [None]
  - SUBCHORIONIC HAEMORRHAGE [None]
  - HYPOMENORRHOEA [None]
  - POLYMENORRHOEA [None]
  - PREGNANCY [None]
  - AMENORRHOEA [None]
